FAERS Safety Report 6937613-9 (Version None)
Quarter: 2010Q3

REPORT INFORMATION
  Report Type: 
  Country: None (occurrence: None)
  Receive Date: 20100823
  Receipt Date: 20100818
  Transmission Date: 20110219
  Serious: Yes (Life-Threatening, Disabling)
  Sender: FDA-Public Use
  Company Number: US-MERCK-1008USA02420

PATIENT
  Sex: Male

DRUGS (1)
  1. JANUVIA [Suspect]
     Dosage: IN THE MORNING
     Route: 048
     Dates: start: 20080601, end: 20100816

REACTIONS (5)
  - DECREASED APPETITE [None]
  - NAUSEA [None]
  - PANCREATIC DISORDER [None]
  - VOMITING [None]
  - WEIGHT DECREASED [None]
